FAERS Safety Report 22051705 (Version 1)
Quarter: 2023Q1

REPORT INFORMATION
  Report Type: Other
  Country: CN (occurrence: None)
  Receive Date: 20230302
  Receipt Date: 20230302
  Transmission Date: 20230417
  Serious: Yes (Other)
  Sender: FDA-Public Use
  Company Number: CN-ROCHE-3297667

PATIENT
  Age: 3 Year
  Sex: Female

DRUGS (2)
  1. RITUXIMAB [Suspect]
     Active Substance: RITUXIMAB
     Indication: Opsoclonus myoclonus
     Dosage: ONCE PER WEEK FOR 4 WEEKS OR ONCE EVERY 2 WEEKS FOR A TOTAL OF 2 TIMES WAS A COURSE OF TREATMENT.
     Route: 042
  2. MYCOPHENOLATE MOFETIL [Suspect]
     Active Substance: MYCOPHENOLATE MOFETIL
     Indication: Opsoclonus myoclonus
     Dosage: INCREASED TO 0.25G/TIME AFTER 2 WEEKS, TWICE A DAY ORAL MAINTENANCE
     Route: 048

REACTIONS (2)
  - Infection [Unknown]
  - Off label use [Unknown]
